FAERS Safety Report 16097058 (Version 1)
Quarter: 2019Q1

REPORT INFORMATION
  Report Type: Spontaneous
  Country: US (occurrence: US)
  Receive Date: 20190320
  Receipt Date: 20190320
  Transmission Date: 20190418
  Serious: Yes (Other)
  Sender: FDA-Public Use
  Company Number: US-B.I. PHARMACEUTICALS,INC./RIDGEFIELD-2019-BI-012014

PATIENT
  Sex: Male

DRUGS (16)
  1. HYDROCORTISONE. [Concomitant]
     Active Substance: HYDROCORTISONE
     Indication: RASH
     Route: 065
  2. PRILOSEC [Concomitant]
     Active Substance: OMEPRAZOLE MAGNESIUM
     Indication: PRODUCT USED FOR UNKNOWN INDICATION
     Dosage: TAKE 1 CAPSULE (40 MG TOTAL) BY MOUTH 2 TIMES DAILY, DISP: 180 CAPSULE, RFL: 3
     Route: 048
  3. PRADAXA [Suspect]
     Active Substance: DABIGATRAN ETEXILATE MESYLATE
     Indication: ANTICOAGULANT THERAPY
     Route: 048
  4. ZOFRAN [Concomitant]
     Active Substance: ONDANSETRON HYDROCHLORIDE
     Indication: NAUSEA
     Dosage: DISINTEGRATING TABLET, TAKE 1 TABLET (8 MG TOTAL) BY MOUTH EVERY 8 (EIGHT) HOURS
     Route: 048
  5. VENTOLIN HFA [Concomitant]
     Active Substance: ALBUTEROL SULFATE
     Indication: PRODUCT USED FOR UNKNOWN INDICATION
     Dosage: 90MCG/ACTUATION INHALER, INHALE 1-2 PUFFS EVERY 4-6 HOURS AS NEEDED. DISP:  RFL:
     Route: 055
  6. NORVASC [Concomitant]
     Active Substance: AMLODIPINE BESYLATE
     Indication: PRODUCT USED FOR UNKNOWN INDICATION
     Dosage: DISP: 90 TABLET RFL:
     Route: 048
  7. NEUROTIN [Concomitant]
     Active Substance: GABAPENTIN
     Indication: PRODUCT USED FOR UNKNOWN INDICATION
     Dosage: 1- 3 CAPSULES PO QHS (EVERY BEDTIME ), DISP: 90CAPSULE, RFL: 5
     Route: 048
  8. DULERA [Concomitant]
     Active Substance: FORMOTEROL FUMARATE DIHYDRATE\MOMETASONE FUROATE
     Indication: PRODUCT USED FOR UNKNOWN INDICATION
     Dosage: 200-5 MCG/ACTUATION HFAA INHALER, INHALE 1 PUFF INTO THE LUNGS 2 TIMES DAILY.
     Route: 055
  9. PRAVACHOL [Concomitant]
     Active Substance: PRAVASTATIN SODIUM
     Indication: PRODUCT USED FOR UNKNOWN INDICATION
     Dosage: TAKE ONE TABLET BY MOUTH AT BEDTIME, DISP: 90 TABLETS
     Route: 048
  10. ZANAFLEX [Concomitant]
     Active Substance: TIZANIDINE HYDROCHLORIDE
     Indication: PRODUCT USED FOR UNKNOWN INDICATION
     Dosage: TAKE 4 MG TABLET BY MOUTH NIGHTLY
     Route: 048
  11. FERROUS SULFATE. [Concomitant]
     Active Substance: FERROUS SULFATE
     Indication: PRODUCT USED FOR UNKNOWN INDICATION
     Dosage: TAKE 1 TABLET (325 MG TOTAL) BY MOUTH DAILY WITH BREAKFAST
     Route: 048
  12. LISINOPRIL. [Concomitant]
     Active Substance: LISINOPRIL
     Indication: PRODUCT USED FOR UNKNOWN INDICATION
     Dosage: 40MG TABLET, TAKE ONE TABLET BY MOUTH ONCE DAILY, DISP: 90 TABLETS, RFL: 3
     Route: 048
  13. LOPRESSOR [Concomitant]
     Active Substance: METOPROLOL TARTRATE
     Indication: PRODUCT USED FOR UNKNOWN INDICATION
     Dosage: TAKE ONE TABLET BY MOUTH TWICE DAILY, DIS: 180 TABLET, RFL: 3
     Route: 048
  14. SINGULAIR [Concomitant]
     Active Substance: MONTELUKAST SODIUM
     Indication: PRODUCT USED FOR UNKNOWN INDICATION
     Dosage: TAKE ONE TABLET BY MOUTH IN THE EVENING, DISP: 90 TABLETS, RFL: 3
     Route: 048
  15. ASTELIN [Concomitant]
     Active Substance: AZELASTINE HYDROCHLORIDE
     Indication: PRODUCT USED FOR UNKNOWN INDICATION
     Dosage: 137MCG(0.1 %)NASAL SPRAY, 1SPRAY BY NASAL ROUTE 2TIMES DAILY. USE IN EACH NOSTRIL AS DIRECTED,DISP:
  16. GLUCOSAMINE + CHONDROITIN [Concomitant]
     Indication: PRODUCT USED FOR UNKNOWN INDICATION
     Dosage: 500-400 MG TABLET, AS DIRECTED, DISP: , RFL:
     Route: 065

REACTIONS (1)
  - Oesophageal carcinoma [Unknown]
